FAERS Safety Report 6109544-8 (Version None)
Quarter: 2009Q1

REPORT INFORMATION
  Report Type: 
  Country: None (occurrence: None)
  Receive Date: 20090306
  Receipt Date: 20090225
  Transmission Date: 20090719
  Serious: Yes (Other)
  Sender: FDA-Public Use
  Company Number: 2009S1000075

PATIENT
  Age: 21 Year
  Sex: Female

DRUGS (1)
  1. SORIATANE [Suspect]
     Indication: HYPERKERATOSIS
     Dosage: 25 MG; QD; PO
     Route: 048
     Dates: end: 20080101

REACTIONS (3)
  - CARDIOMYOPATHY [None]
  - NEUROPATHY PERIPHERAL [None]
  - OFF LABEL USE [None]
